FAERS Safety Report 5612653-0 (Version None)
Quarter: 2008Q1

REPORT INFORMATION
  Report Type: 
  Country: None (occurrence: None)
  Receive Date: 20080201
  Receipt Date: 20080201
  Transmission Date: 20080703
  Serious: No
  Sender: FDA-Public Use
  Company Number: None

PATIENT
  Age: 82 Year
  Sex: Male
  Weight: 95.9 kg

DRUGS (2)
  1. PAMIDRONATE DISODIUM [Suspect]
     Indication: HYPERCALCAEMIA
     Dosage: 90MG OTHER IV
     Route: 042
     Dates: start: 20060531, end: 20071120
  2. ZOLEDRONIC ACID [Suspect]
     Indication: HYPERCALCAEMIA
     Dosage: 3MG ONCE IV
     Route: 042
     Dates: start: 20070821, end: 20070821

REACTIONS (4)
  - GLOSSITIS [None]
  - GLOSSODYNIA [None]
  - OSTEONECROSIS [None]
  - TENDERNESS [None]
